FAERS Safety Report 5499257-8 (Version None)
Quarter: 2007Q4

REPORT INFORMATION
  Report Type: 
  Country: None (occurrence: None)
  Receive Date: 20071026
  Receipt Date: 20071017
  Transmission Date: 20080405
  Serious: Yes (Hospitalization)
  Sender: FDA-Public Use
  Company Number: PHBS2007JP17016

PATIENT
  Age: 53 Year
  Sex: Male

DRUGS (7)
  1. TEGRETOL [Suspect]
     Indication: NERVE INJURY
     Dosage: 1 TABLET/ TID
     Route: 048
     Dates: start: 20030101
  2. TEGRETOL [Suspect]
     Dosage: 600 MG/DAY
     Route: 048
     Dates: start: 20070928, end: 20071002
  3. ALCOHOL [Suspect]
     Route: 048
  4. METHYCOBAL [Concomitant]
     Indication: NERVE INJURY
     Dosage: 3 DF/DAY
     Route: 048
  5. MEXITIL [Concomitant]
     Indication: NERVE INJURY
     Dosage: 300 MG/DAY
     Route: 048
  6. TANATRIL [Concomitant]
     Indication: HYPERTENSION
     Dosage: 5 MG/DAY
     Route: 048
  7. PENFILL N [Concomitant]
     Indication: DIABETES MELLITUS
     Route: 058

REACTIONS (4)
  - ALCOHOL INTERACTION [None]
  - DIZZINESS [None]
  - GAIT DISTURBANCE [None]
  - ROAD TRAFFIC ACCIDENT [None]
